FAERS Safety Report 19372641 (Version 1)
Quarter: 2021Q2

REPORT INFORMATION
  Report Type: Spontaneous
  Country: US (occurrence: US)
  Receive Date: 20210603
  Receipt Date: 20210603
  Transmission Date: 20210717
  Serious: Yes (Hospitalization)
  Sender: FDA-Public Use
  Company Number: None

PATIENT
  Sex: Female

DRUGS (13)
  1. DILTIAZEM ER [Concomitant]
     Active Substance: DILTIAZEM
  2. DULOXETINE. [Concomitant]
     Active Substance: DULOXETINE
  3. EMGALITY [Concomitant]
     Active Substance: GALCANEZUMAB-GNLM
  4. DOFETILIDE 250 MCG CAP [Suspect]
     Active Substance: DOFETILIDE
     Indication: PULMONARY ARTERIAL HYPERTENSION
     Dosage: 1 CAP Q12HR PO
     Route: 048
     Dates: start: 20210408
  5. CALCIUM CHW [Concomitant]
  6. PROAIR HFA [Concomitant]
     Active Substance: ALBUTEROL SULFATE
  7. PROTONIX [Concomitant]
     Active Substance: PANTOPRAZOLE SODIUM
  8. UBRELVY [Concomitant]
     Active Substance: UBROGEPANT
  9. CRAN CON [Concomitant]
  10. ELIQUIS [Concomitant]
     Active Substance: APIXABAN
  11. IBUPROFEN. [Concomitant]
     Active Substance: IBUPROFEN
  12. AMBRISENTAN [Concomitant]
     Active Substance: AMBRISENTAN
  13. LEVOTHYROXIN [Concomitant]
     Active Substance: LEVOTHYROXINE

REACTIONS (2)
  - Hospitalisation [None]
  - Sepsis [None]
